FAERS Safety Report 10445385 (Version 1)
Quarter: 2014Q3

REPORT INFORMATION
  Report Type: Spontaneous
  Country: JP (occurrence: JP)
  Receive Date: 20140910
  Receipt Date: 20140910
  Transmission Date: 20150326
  Serious: Yes (Hospitalization)
  Sender: FDA-Public Use
  Company Number: JP-GLAXOSMITHKLINE-B1031515A

PATIENT
  Age: 84 Year
  Sex: Female

DRUGS (1)
  1. VALTREX [Suspect]
     Active Substance: VALACYCLOVIR HYDROCHLORIDE
     Indication: HERPES ZOSTER
     Dosage: 1000MG THREE TIMES PER DAY
     Route: 048

REACTIONS (7)
  - Dysarthria [Recovering/Resolving]
  - Renal failure acute [Recovering/Resolving]
  - Glassy eyes [Recovering/Resolving]
  - Laboratory test abnormal [Recovering/Resolving]
  - Hyperkalaemia [Recovering/Resolving]
  - Face oedema [Recovering/Resolving]
  - Anuria [Recovering/Resolving]
